FAERS Safety Report 4617103-9 (Version None)
Quarter: 2005Q1

REPORT INFORMATION
  Report Type: 
  Country: None (occurrence: None)
  Receive Date: 20050323
  Receipt Date: 20050314
  Transmission Date: 20050727
  Serious: Yes (Death)
  Sender: FDA-Public Use
  Company Number: FR-ROCHE-398349

PATIENT
  Age: 54 Year
  Sex: Female
  Weight: 91 kg

DRUGS (6)
  1. RIVOTRIL [Suspect]
     Route: 048
     Dates: start: 20050224, end: 20050226
  2. RISPERDAL [Suspect]
     Indication: DRUG USE FOR UNKNOWN INDICATION
     Route: 048
     Dates: start: 20020916, end: 20050226
  3. LIPANTHYL [Suspect]
     Indication: DRUG USE FOR UNKNOWN INDICATION
     Route: 048
     Dates: end: 20050226
  4. TERCIAN [Suspect]
     Route: 048
     Dates: start: 20050211, end: 20050225
  5. ABILIFY [Suspect]
     Indication: DRUG USE FOR UNKNOWN INDICATION
     Route: 048
     Dates: start: 20050209, end: 20050226
  6. LEPTICUR [Suspect]
     Route: 048
     Dates: start: 20050218, end: 20050226

REACTIONS (7)
  - BLOOD CREATINE PHOSPHOKINASE INCREASED [None]
  - CARDIAC ARREST [None]
  - ELECTROCARDIOGRAM ST-T SEGMENT ELEVATION [None]
  - FEELING ABNORMAL [None]
  - HYPERKALAEMIA [None]
  - PSYCHOMOTOR HYPERACTIVITY [None]
  - RESPIRATORY ARREST [None]
